FAERS Safety Report 4616709-0 (Version None)
Quarter: 2005Q1

REPORT INFORMATION
  Report Type: 
  Country: None (occurrence: None)
  Receive Date: 20050321
  Receipt Date: 20050308
  Transmission Date: 20050727
  Serious: Yes (Hospitalization)
  Sender: FDA-Public Use
  Company Number: MK200503-0120-1

PATIENT
  Age: 49 Year
  Sex: Female

DRUGS (8)
  1. TOFRANIL TAB [Suspect]
     Indication: DEPRESSION
     Dosage: 250 MG, ORAL
     Route: 048
     Dates: start: 20050126
  2. VEGETAMIN B [Suspect]
     Dates: start: 20050126
  3. AMOXAN [Concomitant]
  4. FEMAS [Concomitant]
  5. AMITRIPTYLINE HCL [Concomitant]
  6. ROPHYNOL [Concomitant]
  7. SENIRAN [Concomitant]
  8. SULPIRIDE [Concomitant]

REACTIONS (5)
  - CARDIOVASCULAR DISORDER [None]
  - LOSS OF CONSCIOUSNESS [None]
  - MULTIPLE DRUG OVERDOSE [None]
  - RESPIRATORY DEPRESSION [None]
  - RESPIRATORY FAILURE [None]
